FAERS Safety Report 7813723-9 (Version None)
Quarter: 2011Q4

REPORT INFORMATION
  Report Type: 
  Country: None (occurrence: None)
  Receive Date: 20111014
  Receipt Date: 20110930
  Transmission Date: 20120403
  Serious: Yes (Other)
  Sender: FDA-Public Use
  Company Number: HU-PAR PHARMACEUTICAL, INC-2011SCPR003273

PATIENT

DRUGS (2)
  1. LAMOTRIGINE [Concomitant]
     Indication: EPILEPSY
     Dosage: UNK, UNKNOWN
     Route: 065
  2. LEVETIRACETAM [Suspect]
     Indication: EPILEPSY
     Dosage: UNK, UNKNOWN
     Route: 065

REACTIONS (2)
  - PARTIAL SEIZURES [None]
  - EPILEPSY [None]
